FAERS Safety Report 4650343-1 (Version None)
Quarter: 2005Q2

REPORT INFORMATION
  Report Type: 
  Country: None (occurrence: None)
  Receive Date: 20050429
  Receipt Date: 20050415
  Transmission Date: 20051028
  Serious: Yes (Hospitalization)
  Sender: FDA-Public Use
  Company Number: 2005UW05914

PATIENT
  Age: 78 Year
  Sex: Male
  Weight: 75.7507 kg

DRUGS (8)
  1. CRESTOR [Suspect]
     Dates: start: 20040123, end: 20041101
  2. ASPIRIN [Concomitant]
  3. FLOMAX [Concomitant]
  4. PHOSLO [Concomitant]
  5. ALBUTEROL [Concomitant]
  6. POSSIBLY OTHER NSAIDS [Concomitant]
  7. PRINIVIL [Concomitant]
  8. LOPRESSOR [Concomitant]

REACTIONS (9)
  - ANORECTAL OPERATION [None]
  - ANURIA [None]
  - DEHYDRATION [None]
  - DIALYSIS [None]
  - LOSS OF CONSCIOUSNESS [None]
  - RENAL FAILURE ACUTE [None]
  - RENAL FAILURE CHRONIC [None]
  - RENAL TUBULAR NECROSIS [None]
  - RHABDOMYOLYSIS [None]
